FAERS Safety Report 5726040-8 (Version None)
Quarter: 2008Q2

REPORT INFORMATION
  Report Type: 
  Country: None (occurrence: None)
  Receive Date: 20080502
  Receipt Date: 20080422
  Transmission Date: 20081010
  Serious: Yes (Hospitalization, Other)
  Sender: FDA-Public Use
  Company Number: US-AMGEN-QUU274383

PATIENT
  Sex: Female
  Weight: 76.3 kg

DRUGS (11)
  1. ENBREL [Suspect]
     Indication: ANKYLOSING SPONDYLITIS
     Route: 058
     Dates: start: 20050906
  2. ARAVA [Concomitant]
     Route: 048
  3. CELEBREX [Concomitant]
  4. HYDROCODONE BITARTRATE + ACETAMINOPHEN [Concomitant]
  5. LEFLUNOMIDE [Concomitant]
  6. MEDROL [Concomitant]
  7. VYTORIN [Concomitant]
  8. ZOLOFT [Concomitant]
  9. PREDNISOLONE [Concomitant]
     Route: 047
  10. CALCIUM [Concomitant]
  11. VITAMIN D [Concomitant]

REACTIONS (8)
  - ARTHRALGIA [None]
  - CORNEAL DYSTROPHY [None]
  - DEVICE BREAKAGE [None]
  - INJECTION SITE BRUISING [None]
  - INTERVERTEBRAL DISC PROTRUSION [None]
  - OSTEOPENIA [None]
  - TENDON DISORDER [None]
  - WEIGHT INCREASED [None]
